FAERS Safety Report 10042034 (Version 2)
Quarter: 2014Q1

REPORT INFORMATION
  Report Type: Spontaneous
  Country: ES (occurrence: ES)
  Receive Date: 20140327
  Receipt Date: 20140327
  Transmission Date: 20141002
  Serious: Yes (Hospitalization, Other)
  Sender: FDA-Public Use
  Company Number: ES-BRISTOL-MYERS SQUIBB COMPANY-20382867

PATIENT
  Age: 84 Year
  Sex: Female
  Weight: 62 kg

DRUGS (6)
  1. ELIQUIS [Suspect]
     Indication: ATRIAL FLUTTER
     Dates: start: 20140214, end: 20140217
  2. ENALAPRIL [Concomitant]
  3. SPIRONOLACTONE [Concomitant]
  4. BISOPROLOL [Concomitant]
  5. FUROSEMIDE [Concomitant]
  6. METFORMIN [Concomitant]

REACTIONS (3)
  - Gastrointestinal haemorrhage [Unknown]
  - Anaemia [Unknown]
  - General physical health deterioration [Unknown]
